FAERS Safety Report 13603282 (Version 4)
Quarter: 2018Q2

REPORT INFORMATION
  Report Type: Spontaneous
  Country: ES (occurrence: ES)
  Receive Date: 20170601
  Receipt Date: 20180510
  Transmission Date: 20180711
  Serious: Yes (Other)
  Sender: FDA-Public Use
  Company Number: ES-ALLERGAN-1722259US

PATIENT
  Age: 75 Year
  Sex: Female

DRUGS (2)
  1. OPTAVA FUSION [Suspect]
     Active Substance: CARBOXYMETHYLCELLULOSE SODIUM
     Dosage: UNK
     Route: 047
     Dates: start: 20170424
  2. OPTAVA FUSION [Suspect]
     Active Substance: CARBOXYMETHYLCELLULOSE SODIUM
     Indication: DRY EYE
     Dosage: UNK
     Route: 047
     Dates: start: 20170424

REACTIONS (5)
  - Eye pruritus [Recovered/Resolved]
  - Hypersensitivity [Recovered/Resolved]
  - Ocular hyperaemia [Recovered/Resolved]
  - Product quality issue [Unknown]
  - Lacrimation increased [Recovered/Resolved]

NARRATIVE: CASE EVENT DATE: 20170517
